FAERS Safety Report 23046792 (Version 1)
Quarter: 2023Q4

REPORT INFORMATION
  Report Type: Report from Study
  Country: US (occurrence: US)
  Receive Date: 20231009
  Receipt Date: 20231009
  Transmission Date: 20240110
  Serious: Yes (Other)
  Sender: FDA-Public Use
  Company Number: US-PFIZER INC-202300313251

PATIENT
  Age: 78 Year
  Sex: Female

DRUGS (2)
  1. BRAFTOVI [Suspect]
     Active Substance: ENCORAFENIB
     Dosage: 225 MG, 1X/DAY
     Route: 048
  2. MEKTOVI [Suspect]
     Active Substance: BINIMETINIB
     Dosage: 2 TABLETS (30 MG) BY MOUTH IN AM AND 1 TABLET (15 MG) BY MOUTH IN PM
     Route: 048

REACTIONS (1)
  - Renal impairment [Recovered/Resolved]
